FAERS Safety Report 9640006 (Version 1)
Quarter: 2013Q4

REPORT INFORMATION
  Report Type: Spontaneous
  Country: DE (occurrence: DE)
  Receive Date: 20131023
  Receipt Date: 20131023
  Transmission Date: 20140711
  Serious: Yes (Hospitalization, Other)
  Sender: FDA-Public Use
  Company Number: PHHY2013DE116961

PATIENT
  Age: 71 Year
  Sex: Male

DRUGS (23)
  1. BASILIXIMAB [Suspect]
     Indication: RENAL TRANSPLANT
     Dosage: 20 MG, QD
     Route: 042
     Dates: start: 20101001
  2. BASILIXIMAB [Suspect]
     Dosage: UNK UKN, UNK
     Route: 042
     Dates: start: 20101005
  3. BASILIXIMAB [Suspect]
     Dosage: UNK UKN, UNK
     Route: 042
     Dates: start: 20101116
  4. PREDNISOLONE [Suspect]
     Indication: RENAL TRANSPLANT
     Dosage: 25 MG,QD
     Route: 048
     Dates: start: 20101001
  5. PREDNISOLONE [Suspect]
     Dosage: 25 MG, 1 IN 1D
     Route: 048
     Dates: start: 20101005
  6. PREDNISOLONE [Suspect]
     Dosage: 25 MG, 1 IN1 D
     Route: 048
     Dates: start: 20101008
  7. PREDNISOLONE [Suspect]
     Dosage: UNK UKN, UNK
     Route: 048
     Dates: start: 20110110
  8. CELLCEPT [Suspect]
     Indication: RENAL TRANSPLANT
     Dosage: 2000 MG, UNK
     Route: 048
     Dates: start: 20101001
  9. CELLCEPT [Suspect]
     Dosage: 1000 MG, 2 IN 1 D
     Dates: start: 20101016
  10. CELLCEPT [Suspect]
     Dosage: 2 DF, UNK
     Dates: start: 20101116
  11. CELLCEPT [Suspect]
     Dosage: UNK UKN, UNK
     Dates: start: 20101127
  12. CELLCEPT [Suspect]
     Dosage: UNK UKN, UNK
     Dates: start: 20101202
  13. CELLCEPT [Suspect]
     Dosage: UNK UKN, UNK
     Dates: start: 20110110
  14. CELLCEPT [Suspect]
     Dosage: 2 DF, UNK
     Dates: start: 20110206
  15. TACROLIMUS [Suspect]
     Indication: RENAL TRANSPLANT
     Dosage: 14 MG, QD
     Route: 048
     Dates: start: 20101001
  16. TACROLIMUS [Suspect]
     Dosage: UNK UKN, UNK
     Dates: start: 20101111
  17. TACROLIMUS [Suspect]
     Dosage: 14 MG, 1IN 1 D
     Route: 048
     Dates: start: 20101116
  18. TACROLIMUS [Suspect]
     Dosage: UNK UKN, UNK
     Route: 048
     Dates: start: 20101202
  19. TACROLIMUS [Suspect]
     Dosage: UNK UKN, UNK
     Dates: start: 20110106
  20. TACROLIMUS [Suspect]
     Dosage: 8 MG, 1 IN 1 D
     Route: 048
     Dates: start: 20110110
  21. TACROLIMUS [Suspect]
     Dosage: UNK UKN, UNK
     Dates: start: 20110114
  22. TACROLIMUS [Suspect]
     Dosage: 7 MG,  1 IN1 D
     Route: 048
     Dates: start: 20110125
  23. TACROLIMUS [Suspect]
     Dosage: 7 MG, 1 IN1 D
     Route: 048
     Dates: start: 20110126

REACTIONS (8)
  - Complications of transplanted kidney [Recovered/Resolved]
  - Renal impairment [Recovered/Resolved]
  - Renal vein thrombosis [Not Recovered/Not Resolved]
  - Hyperglycaemia [Recovered/Resolved]
  - Blood creatinine increased [Recovered/Resolved]
  - Hyperkalaemia [Recovered/Resolved]
  - Infection [Recovered/Resolved]
  - C-reactive protein increased [Unknown]
